FAERS Safety Report 6819659 (Version 2)
Quarter: 2013Q1

REPORT INFORMATION
  Report Type: Spontaneous
  Country: US (occurrence: US)
  Receive Date: 20081124
  Receipt Date: 20130228
  Transmission Date: 20140127
  Serious: Yes (Other)
  Sender: FDA-Public Use
  Company Number: US-RB-006542-08

PATIENT
  Age: 25 Year
  Sex: Female
  Weight: 54 kg

DRUGS (8)
  1. SUBOXONE TABLET [Suspect]
     Route: 060
     Dates: start: 20081117, end: 20081117
  2. SUBOXONE TABLET [Suspect]
     Route: 060
     Dates: start: 20081118, end: 20081118
  3. SUBOXONE TABLET [Suspect]
     Route: 060
     Dates: start: 20081119, end: 20081119
  4. SUBOXONE TABLET [Suspect]
     Indication: DRUG DEPENDENCE
     Route: 060
     Dates: start: 20081120, end: 20081120
  5. SUBOXONE TABLET [Suspect]
     Route: 060
     Dates: start: 20081121, end: 20090922
  6. BENZODIAZEPINES [Suspect]
     Indication: PRODUCT USED FOR UNKNOWN INDICATION
     Dosage: DOSING DETAILS UNKNOWN
     Route: 065
  7. TETRAHYDROCANNABINOL [Suspect]
     Indication: PRODUCT USED FOR UNKNOWN INDICATION
     Dosage: DOSING DETAILS UNKNOWN
     Route: 065
  8. COCAINE [Suspect]
     Indication: PRODUCT USED FOR UNKNOWN INDICATION
     Dosage: DOSING DETAILS UNKNOWN
     Route: 065

REACTIONS (3)
  - Overdose [Recovered/Resolved]
  - Convulsion [Recovered/Resolved]
  - Drug abuse [Recovered/Resolved]
